FAERS Safety Report 11771562 (Version 1)
Quarter: 2015Q4

REPORT INFORMATION
  Report Type: Spontaneous
  Country: US (occurrence: None)
  Receive Date: 20151123
  Receipt Date: 20151123
  Transmission Date: 20160304
  Serious: Yes (Disabling)
  Sender: FDA-Public Use
  Company Number: None

PATIENT
  Age: 69 Year
  Sex: Female
  Weight: 68.95 kg

DRUGS (15)
  1. SPIRONOLACTONE 100 MG QUALITEST [Suspect]
     Active Substance: SPIRONOLACTONE
     Indication: HYPOTHYROIDISM
     Dosage: 100 MG ONE PILL ONCE DAILY TAKEN BY MOUTH
     Route: 048
     Dates: start: 20150706, end: 20151121
  2. ALPRAZOLAM. [Concomitant]
     Active Substance: ALPRAZOLAM
  3. OMEGA-3 ACIDS [Concomitant]
     Active Substance: OMEGA-3 FATTY ACIDS
  4. SPIRONOLACTONE 100 MG QUALITEST [Suspect]
     Active Substance: SPIRONOLACTONE
     Indication: ALOPECIA
     Dosage: 100 MG ONE PILL ONCE DAILY TAKEN BY MOUTH
     Route: 048
     Dates: start: 20150706, end: 20151121
  5. HRT CREAM WITH ESTRADIOL AND PROGRESTERONE [Concomitant]
  6. PURE ENCAPSULATIONS MAGNESIUM GLYCINATE [Concomitant]
  7. D-3 [Concomitant]
     Active Substance: CHOLECALCIFEROL
  8. CURCUMIN [Concomitant]
     Active Substance: CURCUMIN
  9. WPTHYROID [Concomitant]
  10. CYTOMEL [Concomitant]
     Active Substance: LIOTHYRONINE SODIUM
  11. EVENING PRIMROSE OIL [Concomitant]
     Active Substance: EVENING PRIMROSE OIL
  12. PURE ENCAPSULATIONS MULTI-VITAMIN [Concomitant]
  13. METHYL-B-12 WITH FOLATE [Concomitant]
  14. ADRENAL HEALTH (BRAND) = (SIBERIAN RHODIOLA, RHODIOLA, HOLY BASIL, SCHISANDRA BERRY, ASHWAGANDHA ROOT) PHOSPHORYLATED SERINE [Concomitant]
  15. SPIRONOLACTONE 100 MG QUALITEST [Suspect]
     Active Substance: SPIRONOLACTONE
     Indication: OEDEMA
     Dosage: 100 MG ONE PILL ONCE DAILY TAKEN BY MOUTH
     Route: 048
     Dates: start: 20150706, end: 20151121

REACTIONS (8)
  - Pain of skin [None]
  - Pruritus [None]
  - Hair growth abnormal [None]
  - Acne [None]
  - Disease recurrence [None]
  - Blood aldosterone increased [None]
  - Product substitution issue [None]
  - Alopecia [None]

NARRATIVE: CASE EVENT DATE: 20151121
